FAERS Safety Report 8880880 (Version 3)
Quarter: 2012Q4

REPORT INFORMATION
  Report Type: 
  Country: SE (occurrence: SE)
  Receive Date: 20121101
  Receipt Date: 20121227
  Transmission Date: 20130627
  Serious: Yes (Other)
  Sender: FDA-Public Use
  Company Number: SE-BAXTER-2012BAX021560

PATIENT
  Age: 29 Year
  Sex: Female

DRUGS (1)
  1. SENDOXAN [Suspect]
     Indication: SLE NEPHRITIS
     Route: 065

REACTIONS (5)
  - Decreased appetite [Unknown]
  - Fluid retention [Unknown]
  - Hypersensitivity [Unknown]
  - Pyrexia [Unknown]
  - Headache [Unknown]
